FAERS Safety Report 4837493-1 (Version None)
Quarter: 2005Q4

REPORT INFORMATION
  Report Type: 
  Country: None (occurrence: None)
  Receive Date: 20051128
  Receipt Date: 20051109
  Transmission Date: 20060501
  Serious: Yes (Other)
  Sender: FDA-Public Use
  Company Number: IE-GLAXOSMITHKLINE-B0400029A

PATIENT
  Age: 50 Year
  Sex: Male
  Weight: 110 kg

DRUGS (5)
  1. AVANDIA [Suspect]
     Indication: DIABETES MELLITUS NON-INSULIN-DEPENDENT
     Dosage: 4MG PER DAY
  2. METFORMIN [Concomitant]
     Dosage: 850MG TWICE PER DAY
  3. CRESTOR [Concomitant]
     Dosage: 20MG PER DAY
  4. TRITACE [Concomitant]
     Dosage: 10MG PER DAY
  5. NEBILET [Concomitant]
     Dosage: 5MG PER DAY

REACTIONS (2)
  - HYPERCHOLESTEROLAEMIA [None]
  - HYPERTRIGLYCERIDAEMIA [None]
